FAERS Safety Report 9835861 (Version 1)
Quarter: 2014Q1

REPORT INFORMATION
  Report Type: Spontaneous
  Country: DE (occurrence: DE)
  Receive Date: 20140122
  Receipt Date: 20140122
  Transmission Date: 20141002
  Serious: Yes (Congenital Anomaly, Other)
  Sender: FDA-Public Use
  Company Number: DE-GILEAD-2014-0092492

PATIENT
  Age: 0 Day
  Sex: Male
  Weight: 2.49 kg

DRUGS (6)
  1. RIFAMPICIN [Concomitant]
     Indication: PULMONARY TUBERCULOSIS
     Dosage: UNK
     Route: 064
     Dates: end: 20081010
  2. PYRAZINAMID [Concomitant]
     Indication: PULMONARY TUBERCULOSIS
     Route: 064
  3. ETHAMBUTOL [Concomitant]
  4. TRUVADA [Suspect]
     Indication: HIV INFECTION
     Dosage: UNK
     Route: 064
     Dates: end: 20090603
  5. LOPINAVIR + RITONAVIR [Suspect]
     Indication: HIV INFECTION
     Dosage: UNK
     Route: 064
     Dates: end: 20090603
  6. ISONIAZID [Concomitant]
     Indication: PULMONARY TUBERCULOSIS
     Dosage: UNK
     Route: 064
     Dates: end: 20081010

REACTIONS (3)
  - Ventricular septal defect [Unknown]
  - Atrial septal defect [Unknown]
  - Small for dates baby [Recovered/Resolved]
